FAERS Safety Report 4886206-6 (Version None)
Quarter: 2006Q1

REPORT INFORMATION
  Report Type: 
  Country: None (occurrence: None)
  Receive Date: 20060118
  Receipt Date: 20060118
  Transmission Date: 20060701
  Serious: Yes (Death)
  Sender: FDA-Public Use
  Company Number: None

PATIENT
  Sex: Male
  Weight: 95.2554 kg

DRUGS (1)
  1. CITALOPRAM .5MG FOREST PHARMACEUTICALS [Suspect]
     Indication: DEPRESSION
     Dosage: .5MG 1-2/DAY ORAL
     Route: 048
     Dates: start: 20051108, end: 20051118

REACTIONS (2)
  - ASPHYXIA [None]
  - COMPLETED SUICIDE [None]
